FAERS Safety Report 7338348-3 (Version None)
Quarter: 2011Q1

REPORT INFORMATION
  Report Type: 
  Country: None (occurrence: None)
  Receive Date: 20110308
  Receipt Date: 20110302
  Transmission Date: 20110831
  Serious: Yes (Death)
  Sender: FDA-Public Use
  Company Number: FI-BRISTOL-MYERS SQUIBB COMPANY-15585367

PATIENT
  Age: 6 Decade
  Sex: Male

DRUGS (1)
  1. QUESTRAN [Suspect]

REACTIONS (1)
  - DEATH [None]
